FAERS Safety Report 15656623 (Version 3)
Quarter: 2019Q2

REPORT INFORMATION
  Report Type: Report from Study
  Country: US (occurrence: US)
  Receive Date: 20181126
  Receipt Date: 20190416
  Transmission Date: 20190711
  Serious: No
  Sender: FDA-Public Use
  Company Number: PHEH2018US048976

PATIENT
  Sex: Male

DRUGS (1)
  1. COSENTYX [Suspect]
     Active Substance: SECUKINUMAB
     Indication: PSORIATIC ARTHROPATHY
     Route: 058

REACTIONS (7)
  - Arthralgia [Unknown]
  - Pain [Unknown]
  - Skin exfoliation [Unknown]
  - Depression [Unknown]
  - Drug ineffective [Unknown]
  - Psoriasis [Unknown]
  - Pruritus [Unknown]
